FAERS Safety Report 17248002 (Version 2)
Quarter: 2020Q1

REPORT INFORMATION
  Report Type: Spontaneous
  Country: US (occurrence: US)
  Receive Date: 20200108
  Receipt Date: 20200207
  Transmission Date: 20200409
  Serious: No
  Sender: FDA-Public Use
  Company Number: US-SA-2020SA004366

PATIENT
  Age: 67 Year
  Sex: Female

DRUGS (2)
  1. DUPIXENT [Suspect]
     Active Substance: DUPILUMAB
     Dosage: 300 MG, QOW
     Dates: start: 20200105, end: 20200105
  2. DUPIXENT [Suspect]
     Active Substance: DUPILUMAB
     Indication: DERMATITIS ATOPIC
     Dosage: 300 MG, 1X
     Dates: start: 20191221, end: 20191221

REACTIONS (9)
  - Erythema [Recovered/Resolved]
  - Dermatitis atopic [Unknown]
  - Eye pain [Recovering/Resolving]
  - Ocular hyperaemia [Unknown]
  - Photophobia [Unknown]
  - Product dose omission [Unknown]
  - Incorrect dose administered [Unknown]
  - Vision blurred [Recovering/Resolving]
  - Sinus congestion [Unknown]

NARRATIVE: CASE EVENT DATE: 20181221
